FAERS Safety Report 8621350-9 (Version None)
Quarter: 2012Q3

REPORT INFORMATION
  Report Type: 
  Country: None (occurrence: None)
  Receive Date: 20120824
  Receipt Date: 20120817
  Transmission Date: 20120928
  Serious: Yes (Other)
  Sender: FDA-Public Use
  Company Number: GB-PFIZER INC-2012127765

PATIENT
  Age: 50 Year
  Sex: Female
  Weight: 73.85 kg

DRUGS (1)
  1. PROVERA [Suspect]
     Indication: DYSFUNCTIONAL UTERINE BLEEDING
     Dosage: 10 MG, 2X/DAY
     Route: 048
     Dates: start: 20120113

REACTIONS (2)
  - LOWER RESPIRATORY TRACT INFECTION [None]
  - AMENORRHOEA [None]
